FAERS Safety Report 17749465 (Version 1)
Quarter: 2020Q2

REPORT INFORMATION
  Report Type: Spontaneous
  Country: US (occurrence: US)
  Receive Date: 20200505
  Receipt Date: 20200505
  Transmission Date: 20200714
  Serious: Yes (Other)
  Sender: FDA-Public Use
  Company Number: US-009507513-2005USA000369

PATIENT
  Sex: Female

DRUGS (7)
  1. PEGINTRON [Suspect]
     Active Substance: PEGINTERFERON ALFA-2B
     Indication: CHRONIC HEPATITIS C
     Route: 058
  2. RIBAVIRIN (WARRICK) [Suspect]
     Active Substance: RIBAVIRIN
     Indication: CHRONIC HEPATITIS C
     Dosage: UNK
     Route: 048
  3. PEGINTRON [Suspect]
     Active Substance: PEGINTERFERON ALFA-2B
     Dosage: UNK
     Route: 058
  4. RIBAVIRIN (WARRICK) [Suspect]
     Active Substance: RIBAVIRIN
     Dosage: UNK
     Route: 048
  5. RIBAVIRIN (WARRICK) [Suspect]
     Active Substance: RIBAVIRIN
     Dosage: UNK
     Route: 048
  6. SOFOSBUVIR [Suspect]
     Active Substance: SOFOSBUVIR
     Indication: CHRONIC HEPATITIS C
     Dosage: UNK
  7. PEGINTRON [Suspect]
     Active Substance: PEGINTERFERON ALFA-2B
     Dosage: UNK
     Route: 058

REACTIONS (3)
  - Cutaneous sarcoidosis [Recovered/Resolved]
  - Adverse event [Unknown]
  - Anaemia [Recovered/Resolved]
